FAERS Safety Report 4385459-0 (Version None)
Quarter: 2004Q2

REPORT INFORMATION
  Report Type: 
  Country: None (occurrence: None)
  Receive Date: 20040622
  Receipt Date: 20040607
  Transmission Date: 20050107
  Serious: Yes (Hospitalization)
  Sender: FDA-Public Use
  Company Number: S04-USA-01563-01

PATIENT
  Age: 15 Year
  Sex: Female

DRUGS (5)
  1. CELEXA [Suspect]
     Indication: ABDOMINAL PAIN
     Dosage: 10 MG ONCE PO
     Route: 048
     Dates: start: 20040220, end: 20040220
  2. CELEXA [Suspect]
     Indication: ABDOMINAL PAIN
     Dosage: 20 MG QD PO
     Route: 048
     Dates: start: 20040221, end: 20040222
  3. PREVACID [Concomitant]
  4. CARAFATE [Concomitant]
  5. BENADRYL [Concomitant]

REACTIONS (16)
  - ABDOMINAL PAIN [None]
  - ABDOMINAL PAIN UPPER [None]
  - ANOREXIA [None]
  - BLOOD AMYLASE INCREASED [None]
  - DYSTONIA [None]
  - GALLBLADDER DISORDER [None]
  - GASTRIC DISORDER [None]
  - GASTRITIS [None]
  - GASTROOESOPHAGEAL REFLUX DISEASE [None]
  - HYPERVENTILATION [None]
  - MUSCLE SPASMS [None]
  - PANIC ATTACK [None]
  - PSYCHOSOMATIC DISEASE [None]
  - RETCHING [None]
  - VOMITING [None]
  - WEIGHT DECREASED [None]
